FAERS Safety Report 19678728 (Version 3)
Quarter: 2021Q4

REPORT INFORMATION
  Report Type: Spontaneous
  Country: DE (occurrence: AT)
  Receive Date: 20210809
  Receipt Date: 20211119
  Transmission Date: 20220303
  Serious: Yes (Hospitalization, Disabling, Other)
  Sender: FDA-Public Use
  Company Number: AT-BIOMARINAP-AT-2021-137697

PATIENT
  Age: 30 Year
  Sex: Male
  Weight: 115 kg

DRUGS (3)
  1. VIMIZIM [Suspect]
     Active Substance: ELOSULFASE ALFA
     Indication: Mucopolysaccharidosis IV
     Dosage: 215 MILLIGRAM
     Route: 042
     Dates: start: 20210714
  2. VOLTAREN [Concomitant]
     Active Substance: DICLOFENAC SODIUM
     Indication: Product used for unknown indication
  3. ENTERIC ASPIRIN [Concomitant]
     Active Substance: ASPIRIN
     Indication: Product used for unknown indication

REACTIONS (4)
  - Ankle fracture [Recovering/Resolving]
  - Thrombosis [Unknown]
  - Pulmonary embolism [Unknown]
  - Fall [Recovering/Resolving]

NARRATIVE: CASE EVENT DATE: 20210719
